FAERS Safety Report 18344540 (Version 1)
Quarter: 2020Q4

REPORT INFORMATION
  Report Type: Spontaneous
  Country: US (occurrence: US)
  Receive Date: 20201005
  Receipt Date: 20201005
  Transmission Date: 20210114
  Serious: No
  Sender: FDA-Public Use
  Company Number: US-BIOGEN-2014BI011835

PATIENT
  Age: 46 Year
  Sex: Female

DRUGS (1)
  1. TECFIDERA [Suspect]
     Active Substance: DIMETHYL FUMARATE
     Indication: MULTIPLE SCLEROSIS
     Route: 048
     Dates: start: 20131017

REACTIONS (7)
  - Ear discomfort [Unknown]
  - Flushing [Recovered/Resolved]
  - Vomiting [Recovered/Resolved]
  - Feeling hot [Unknown]
  - Gastric disorder [Recovered/Resolved]
  - Hot flush [Unknown]
  - Pruritus [Unknown]

NARRATIVE: CASE EVENT DATE: 201310
